FAERS Safety Report 23745198 (Version 1)
Quarter: 2024Q2

REPORT INFORMATION
  Report Type: Spontaneous
  Country: US (occurrence: US)
  Receive Date: 20240416
  Receipt Date: 20240416
  Transmission Date: 20240716
  Serious: No
  Sender: FDA-Public Use
  Company Number: US-AMGEN-USASP2024072804

PATIENT
  Age: 68 Year
  Sex: Female

DRUGS (1)
  1. PROLIA [Suspect]
     Active Substance: DENOSUMAB
     Indication: Osteoporosis
     Dosage: UNK, UNK
     Route: 065
     Dates: start: 20231219

REACTIONS (17)
  - Pain [Not Recovered/Not Resolved]
  - Bone pain [Not Recovered/Not Resolved]
  - Respiratory tract congestion [Not Recovered/Not Resolved]
  - Dry mouth [Not Recovered/Not Resolved]
  - Cough [Not Recovered/Not Resolved]
  - Limb discomfort [Not Recovered/Not Resolved]
  - Hypotension [Not Recovered/Not Resolved]
  - Hypoaesthesia [Not Recovered/Not Resolved]
  - Asthenia [Not Recovered/Not Resolved]
  - Rash [Not Recovered/Not Resolved]
  - Tremor [Not Recovered/Not Resolved]
  - Urine odour abnormal [Not Recovered/Not Resolved]
  - Migraine [Not Recovered/Not Resolved]
  - Skin discolouration [Not Recovered/Not Resolved]
  - Dizziness [Not Recovered/Not Resolved]
  - Amnesia [Not Recovered/Not Resolved]
  - Depression [Not Recovered/Not Resolved]

NARRATIVE: CASE EVENT DATE: 20231221
